FAERS Safety Report 6045535-3 (Version None)
Quarter: 2009Q1

REPORT INFORMATION
  Report Type: 
  Country: None (occurrence: None)
  Receive Date: 20090121
  Receipt Date: 20090115
  Transmission Date: 20090719
  Serious: Yes (Hospitalization)
  Sender: FDA-Public Use
  Company Number: B0554086A

PATIENT
  Age: 62 Year
  Sex: Female

DRUGS (1)
  1. ALKERAN [Suspect]
     Indication: STEM CELL TRANSPLANT
     Dosage: 100MGM2 PER DAY
     Route: 042
     Dates: start: 20090106, end: 20090107

REACTIONS (3)
  - HYPOCALCAEMIA [None]
  - HYPONATRAEMIA [None]
  - URETERAL DISORDER [None]
